FAERS Safety Report 9621147 (Version 1)
Quarter: 2013Q4

REPORT INFORMATION
  Report Type: Spontaneous
  Country: IL (occurrence: IL)
  Receive Date: 20131015
  Receipt Date: 20131015
  Transmission Date: 20140711
  Serious: Yes (Death, Life-Threatening)
  Sender: FDA-Public Use
  Company Number: IL-BAXTER-2013BAX039957

PATIENT
  Age: 64 Year
  Sex: Male

DRUGS (3)
  1. OSMITROL 20% INJ. (MANNITOL 20% INJ. USP) [Suspect]
     Indication: URINE OUTPUT DECREASED
     Dosage: UNKNOWN AMOUNT OF CONCENTRATED MANNITOL
  2. NACL [Suspect]
     Indication: URINE OUTPUT DECREASED
  3. GLUCOSE [Suspect]
     Indication: URINE OUTPUT DECREASED
     Route: 065

REACTIONS (4)
  - Pneumonia [Fatal]
  - Respiratory failure [Fatal]
  - Hyperosmolar state [Recovering/Resolving]
  - Hyponatraemia [Recovering/Resolving]
